FAERS Safety Report 9036717 (Version 1)
Quarter: 2013Q1

REPORT INFORMATION
  Report Type: Spontaneous
  Country: GB (occurrence: None)
  Receive Date: 20130114
  Receipt Date: 20130114
  Transmission Date: 20140127
  Serious: Yes (Hospitalization, Other)
  Sender: FDA-Public Use
  Company Number: THQ2013A00186

PATIENT
  Age: 67 Year
  Sex: Female

DRUGS (12)
  1. LANSOPRAZOLE (LANSOPRAZOLE) [Suspect]
     Indication: PRODUCT USED FOR UNKNOWN INDICATION
  2. DOXYCYCLINE MONOHYDRATE [Suspect]
     Indication: PRODUCT USED FOR UNKNOWN INDICATION
     Route: 048
     Dates: end: 20110502
  3. TRIMETHOPRIM [Suspect]
     Indication: URINARY TRACT INFECTION
     Dosage: (200 MG,2 IN 1 D)
     Route: 048
     Dates: start: 20110416, end: 20110423
  4. CIPROFLOXACIN [Suspect]
     Indication: PRODUCT USED FOR UNKNOWN INDICATION
     Dosage: (500 MG,2 IN 1 D)
     Route: 048
     Dates: start: 20110401, end: 20110408
  5. CLARITHROMYCIN [Suspect]
     Indication: PRODUCT USED FOR UNKNOWN INDICATION
     Dosage: (500 MG,2 IN 1 D)
     Route: 048
  6. BUMETANIDE [Concomitant]
  7. AMLODIPINE [Concomitant]
  8. ACETYLSALICYLIC ACID [Concomitant]
  9. ATORVASTATIN [Concomitant]
  10. BENDROFLUMETHIAZIDE [Concomitant]
  11. IRBESARTAN [Concomitant]
  12. PARACETAMOL [Concomitant]

REACTIONS (4)
  - Clostridium difficile infection [None]
  - Diarrhoea [None]
  - Disease progression [None]
  - Urinary tract infection [None]
